APPROVED DRUG PRODUCT: INDOMETHACIN
Active Ingredient: INDOMETHACIN
Strength: 25MG
Dosage Form/Route: CAPSULE;ORAL
Application: A070782 | Product #001
Applicant: HALSEY DRUG CO INC
Approved: Jun 3, 1987 | RLD: No | RS: No | Type: DISCN